FAERS Safety Report 8715858 (Version 5)
Quarter: 2012Q4

REPORT INFORMATION
  Report Type: Report from Study
  Country: US (occurrence: US)
  Receive Date: 20120809
  Receipt Date: 20120914
  Transmission Date: 20130627
  Serious: Yes (Hospitalization, Other)
  Sender: FDA-Public Use
  Company Number: US-PURDUE-USA-2012-0091094

PATIENT
  Age: 58 Year
  Sex: Male

DRUGS (27)
  1. OXYCONTIN (NDA 22-272) [Suspect]
     Indication: PRODUCT USED FOR UNKNOWN INDICATION
     Dosage: 20 mg, bid
     Route: 048
  2. OXYCODONE HYDROCHLORIDE (SIMILAR TO NDA 22-272) [Suspect]
     Indication: BACK PAIN
     Dosage: 10 mg, prn
     Route: 048
     Dates: start: 201201
  3. IPILIMUMAB [Suspect]
     Indication: PROSTATE CANCER
     Dosage: 295 mg, UNK
     Route: 041
     Dates: start: 20111206, end: 20120529
  4. PLACEBO [Suspect]
     Indication: PROSTATE CANCER
     Dosage: UNK
     Route: 041
     Dates: start: 20111206, end: 20120529
  5. ACTOS [Concomitant]
     Indication: PRODUCT USED FOR UNKNOWN INDICATION
  6. ASPIRIN [Concomitant]
     Indication: PRODUCT USED FOR UNKNOWN INDICATION
  7. ALEVE [Concomitant]
     Indication: PRODUCT USED FOR UNKNOWN INDICATION
  8. AMARYL [Concomitant]
     Indication: PRODUCT USED FOR UNKNOWN INDICATION
  9. CELEBREX [Concomitant]
     Indication: BACK PAIN
     Dosage: UNK
     Dates: start: 20120724
  10. CITALOPRAM [Concomitant]
     Indication: PRODUCT USED FOR UNKNOWN INDICATION
  11. METFORMIN [Concomitant]
     Indication: PRODUCT USED FOR UNKNOWN INDICATION
  12. PREDNISONE [Concomitant]
     Indication: PRURITUS
     Dosage: UNK
  13. PREDNISONE [Concomitant]
     Dosage: UNK
     Dates: start: 20120724
  14. LISINOPRIL [Concomitant]
     Indication: PRODUCT USED FOR UNKNOWN INDICATION
  15. TITRALAC                           /00183701/ [Concomitant]
     Indication: PRODUCT USED FOR UNKNOWN INDICATION
  16. TRAZODONE [Concomitant]
     Indication: PRODUCT USED FOR UNKNOWN INDICATION
  17. TRIAMCINOLONE [Concomitant]
     Indication: PRODUCT USED FOR UNKNOWN INDICATION
  18. ZOCOR [Concomitant]
     Indication: PRODUCT USED FOR UNKNOWN INDICATION
  19. BUSPAR [Concomitant]
     Indication: PRODUCT USED FOR UNKNOWN INDICATION
  20. HUMULIN N [Concomitant]
     Indication: PRODUCT USED FOR UNKNOWN INDICATION
  21. HUMULIN R [Concomitant]
     Indication: PRODUCT USED FOR UNKNOWN INDICATION
  22. NOVOLIN [Concomitant]
     Indication: PRODUCT USED FOR UNKNOWN INDICATION
  23. PAXIL [Concomitant]
     Indication: PRODUCT USED FOR UNKNOWN INDICATION
  24. SULFAMETHOXAZOLE [Concomitant]
     Indication: PRODUCT USED FOR UNKNOWN INDICATION
  25. AUGMENTIN                          /00756801/ [Concomitant]
     Indication: PRODUCT USED FOR UNKNOWN INDICATION
  26. MYCOSTATIN [Concomitant]
     Indication: PRODUCT USED FOR UNKNOWN INDICATION
  27. BACTRIM [Concomitant]
     Indication: PRODUCT USED FOR UNKNOWN INDICATION

REACTIONS (23)
  - Drug dependence [Recovered/Resolved]
  - Drug abuse [Unknown]
  - Cellulitis [Recovered/Resolved with Sequelae]
  - Staphylococcus test [Recovered/Resolved with Sequelae]
  - Skin ulcer [Recovered/Resolved with Sequelae]
  - Psychotic disorder [Recovered/Resolved]
  - Abnormal behaviour [Unknown]
  - Delusion of grandeur [Unknown]
  - Self injurious behaviour [Unknown]
  - Electrocardiogram ST segment elevation [Unknown]
  - Aggression [Unknown]
  - Thinking abnormal [Unknown]
  - Tachycardia [Unknown]
  - Withdrawal syndrome [Unknown]
  - Anxiety [Unknown]
  - Insomnia [Unknown]
  - Restlessness [Unknown]
  - Hyperhidrosis [Unknown]
  - Tremor [Unknown]
  - Diarrhoea [Recovered/Resolved]
  - Euphoric mood [Unknown]
  - Agitation [Unknown]
  - Mania [Unknown]
